FAERS Safety Report 5742451-9 (Version None)
Quarter: 2008Q2

REPORT INFORMATION
  Report Type: 
  Country: None (occurrence: None)
  Receive Date: 20080514
  Receipt Date: 20080110
  Transmission Date: 20081010
  Serious: Yes (Other)
  Sender: FDA-Public Use
  Company Number: WAES 0705USA02891

PATIENT
  Age: 47 Year
  Sex: Female

DRUGS (5)
  1. FOSAMAX PLUS D [Suspect]
     Indication: OSTEOPOROSIS
     Dosage: PO
     Route: 048
     Dates: start: 20030101, end: 20040101
  2. FOSAMAX [Suspect]
     Dosage: PO
     Route: 048
  3. ALTACE [Concomitant]
  4. THERAPY UNSPECIFIED [Concomitant]
  5. METFORMIN [Concomitant]

REACTIONS (7)
  - GINGIVAL BLEEDING [None]
  - GINGIVAL DISORDER [None]
  - ORAL DISORDER [None]
  - ORAL INFECTION [None]
  - OSTEONECROSIS [None]
  - RHEUMATOID ARTHRITIS [None]
  - SENSATION OF HEAVINESS [None]
